FAERS Safety Report 9518847 (Version 1)
Quarter: 2013Q3

REPORT INFORMATION
  Report Type: Spontaneous
  Country: US (occurrence: US)
  Receive Date: 20130912
  Receipt Date: 20130912
  Transmission Date: 20140515
  Serious: Yes (Other)
  Sender: FDA-Public Use
  Company Number: US-BAYER-2013-109962

PATIENT
  Age: 76 Year
  Sex: Male
  Weight: 77 kg

DRUGS (2)
  1. BAYER ASPIRIN REGIMEN ADULT LOW STRENGTH [Suspect]
     Indication: ISCHAEMIC HEART DISEASE PROPHYLAXIS
     Dosage: 1 DF, QD
     Route: 048
     Dates: start: 2011, end: 201308
  2. ALEVE CAPLET [Interacting]
     Dosage: 2 CAPLETS ON TUESDAY AND ON WEDNESDAY EVERY WEEK
     Route: 048
     Dates: start: 2006

REACTIONS (3)
  - Haematochezia [Recovered/Resolved]
  - Faeces discoloured [Recovered/Resolved]
  - Labelled drug-drug interaction medication error [None]
